FAERS Safety Report 16687405 (Version 2)
Quarter: 2020Q3

REPORT INFORMATION
  Report Type: Report from Study
  Country: GB (occurrence: GB)
  Receive Date: 20190809
  Receipt Date: 20200910
  Transmission Date: 20201102
  Serious: Yes (Other)
  Sender: FDA-Public Use
  Company Number: GB-JNJFOC-20190809659

PATIENT
  Age: 58 Year
  Sex: Male
  Weight: 108 kg

DRUGS (7)
  1. SIMVASTATIN. [Concomitant]
     Active Substance: SIMVASTATIN
  2. INSULIN GLULISINE [Concomitant]
     Active Substance: INSULIN GLULISINE
     Dates: start: 20080701
  3. AMLODIPINE [Concomitant]
     Active Substance: AMLODIPINE BESYLATE
     Dates: start: 20181119
  4. RAMIPRIL. [Concomitant]
     Active Substance: RAMIPRIL
  5. STELARA [Suspect]
     Active Substance: USTEKINUMAB
     Indication: PSORIASIS
     Route: 058
     Dates: start: 20110418, end: 20190128
  6. BENDROFLUMETHIAZIDE [Concomitant]
     Active Substance: BENDROFLUMETHIAZIDE
  7. LANTUS [Concomitant]
     Active Substance: INSULIN GLARGINE

REACTIONS (2)
  - Adenocarcinoma [Recovered/Resolved]
  - Gastrointestinal tract adenoma [Recovered/Resolved]

NARRATIVE: CASE EVENT DATE: 20181113
